FAERS Safety Report 9838791 (Version 1)
Quarter: 2014Q1

REPORT INFORMATION
  Report Type: Spontaneous
  Country: IT (occurrence: None)
  Receive Date: 20140116
  Receipt Date: 20140116
  Transmission Date: 20141002
  Serious: Yes (Life-Threatening)
  Sender: FDA-Public Use
  Company Number: 2115183

PATIENT
  Age: 57 Year
  Sex: Male

DRUGS (1)
  1. (OXALIPLATIN) [Suspect]
     Indication: PANCREATIC CARCINOMA
     Dosage: (NOT OTHERWISE SPECIFIED)
     Route: 042
     Dates: start: 20131127, end: 20131127

REACTIONS (4)
  - Epilepsy [None]
  - Bradycardia [None]
  - Loss of consciousness [None]
  - Hypotension [None]
